FAERS Safety Report 18312272 (Version 1)
Quarter: 2020Q3

REPORT INFORMATION
  Report Type: Spontaneous
  Country: MT (occurrence: MT)
  Receive Date: 20200925
  Receipt Date: 20200925
  Transmission Date: 20201103
  Serious: Yes (Death, Hospitalization)
  Sender: FDA-Public Use
  Company Number: MT-MYLANLABS-2020M1081245

PATIENT
  Age: 4 Year
  Sex: Male

DRUGS (18)
  1. CLARITHROMYCIN. [Suspect]
     Active Substance: CLARITHROMYCIN
     Indication: MENINGITIS PNEUMOCOCCAL
  2. METRONIDAZOLE. [Suspect]
     Active Substance: METRONIDAZOLE
     Indication: MENINGITIS PNEUMOCOCCAL
  3. PHENYTOIN. [Suspect]
     Active Substance: PHENYTOIN
     Indication: MENINGOENCEPHALITIS BACTERIAL
  4. MANNITOL. [Suspect]
     Active Substance: MANNITOL
     Indication: STATUS EPILEPTICUS
     Dosage: UNK
     Route: 065
  5. MANNITOL. [Suspect]
     Active Substance: MANNITOL
     Indication: MENINGOENCEPHALITIS BACTERIAL
  6. MIDAZOLAM. [Suspect]
     Active Substance: MIDAZOLAM
     Indication: STATUS EPILEPTICUS
     Dosage: UNK
     Route: 065
  7. CLARITHROMYCIN. [Suspect]
     Active Substance: CLARITHROMYCIN
     Indication: MENINGOENCEPHALITIS BACTERIAL
     Dosage: UNK
     Route: 065
  8. MANNITOL. [Suspect]
     Active Substance: MANNITOL
     Indication: MENINGITIS PNEUMOCOCCAL
  9. MIDAZOLAM. [Suspect]
     Active Substance: MIDAZOLAM
     Indication: MENINGOENCEPHALITIS BACTERIAL
  10. VANCOMYCIN [Suspect]
     Active Substance: VANCOMYCIN
     Indication: MENINGITIS PNEUMOCOCCAL
  11. CEFTRIAXONE. [Suspect]
     Active Substance: CEFTRIAXONE
     Indication: MENINGOENCEPHALITIS BACTERIAL
     Dosage: UNK
     Route: 065
  12. CEFTRIAXONE. [Suspect]
     Active Substance: CEFTRIAXONE
     Indication: MENINGITIS PNEUMOCOCCAL
  13. PHENYTOIN. [Suspect]
     Active Substance: PHENYTOIN
     Indication: STATUS EPILEPTICUS
     Dosage: UNK
     Route: 065
  14. PHENYTOIN. [Suspect]
     Active Substance: PHENYTOIN
     Indication: MENINGITIS PNEUMOCOCCAL
  15. ACYCLOVIR                          /00587301/ [Concomitant]
     Active Substance: ACYCLOVIR
     Indication: ANTIVIRAL PROPHYLAXIS
     Dosage: UNK
     Route: 065
  16. VANCOMYCIN [Suspect]
     Active Substance: VANCOMYCIN
     Indication: MENINGOENCEPHALITIS BACTERIAL
     Dosage: UNK
     Route: 065
  17. METRONIDAZOLE. [Suspect]
     Active Substance: METRONIDAZOLE
     Indication: MENINGOENCEPHALITIS BACTERIAL
     Dosage: UNK
     Route: 065
  18. MIDAZOLAM. [Suspect]
     Active Substance: MIDAZOLAM
     Indication: MENINGITIS PNEUMOCOCCAL

REACTIONS (1)
  - Drug ineffective [Fatal]
